FAERS Safety Report 15160448 (Version 1)
Quarter: 2018Q3

REPORT INFORMATION
  Report Type: Report from Study
  Country: US (occurrence: US)
  Receive Date: 20180718
  Receipt Date: 20180718
  Transmission Date: 20181010
  Serious: Yes (Hospitalization, Other)
  Sender: FDA-Public Use
  Company Number: US-ASTRAZENECA-2018SE72095

PATIENT
  Age: 49 Year
  Sex: Female
  Weight: 128.8 kg

DRUGS (32)
  1. HYDROCOD/ACETAM [Concomitant]
  2. REMERON [Concomitant]
     Active Substance: MIRTAZAPINE
  3. BACLOFEN. [Concomitant]
     Active Substance: BACLOFEN
  4. OXCARBAZEPINE. [Concomitant]
     Active Substance: OXCARBAZEPINE
  5. PULMICORT RESPULES [Suspect]
     Active Substance: BUDESONIDE
     Dosage: 0.5 MG/2ML, TWO TIMES A DAY
     Route: 055
  6. CARAFATE [Concomitant]
     Active Substance: SUCRALFATE
  7. FLUCONAZOLE. [Concomitant]
     Active Substance: FLUCONAZOLE
     Dosage: TWO TIMES A DAY
  8. PREDNISONE. [Concomitant]
     Active Substance: PREDNISONE
     Dates: start: 201802
  9. PROAIR HFA [Concomitant]
     Active Substance: ALBUTEROL SULFATE
  10. TRIAMCINOLONE [Concomitant]
     Active Substance: TRIAMCINOLONE
  11. SPIRONOLACTONE. [Concomitant]
     Active Substance: SPIRONOLACTONE
  12. VOLTAREN [Concomitant]
     Active Substance: DICLOFENAC SODIUM
  13. TRIAMCINOLONE [Concomitant]
     Active Substance: TRIAMCINOLONE
  14. FASENRA [Suspect]
     Active Substance: BENRALIZUMAB
     Indication: ASTHMA
     Route: 058
     Dates: start: 20180612
  15. MELOXICAM. [Concomitant]
     Active Substance: MELOXICAM
  16. ZANTAC [Concomitant]
     Active Substance: RANITIDINE HYDROCHLORIDE
  17. CYMBALTA [Concomitant]
     Active Substance: DULOXETINE HYDROCHLORIDE
  18. COREG [Concomitant]
     Active Substance: CARVEDILOL
  19. ALIGN [Concomitant]
     Active Substance: BIFIDOBACTERIUM LONGUM SUBSP. INFANTIS
  20. VITAMIN B12 [Concomitant]
     Active Substance: CYANOCOBALAMIN
  21. PROMETHAZINE [Concomitant]
     Active Substance: PROMETHAZINE\PROMETHAZINE HYDROCHLORIDE
  22. CLONAZEPAM. [Concomitant]
     Active Substance: CLONAZEPAM
  23. OMEPRAZOLE. [Suspect]
     Active Substance: OMEPRAZOLE
     Route: 048
  24. ACYCLOVIR. [Concomitant]
     Active Substance: ACYCLOVIR
  25. SINGULAIR [Concomitant]
     Active Substance: MONTELUKAST SODIUM
  26. TRELEGY ELLIPTA [Concomitant]
     Active Substance: FLUTICASONE FUROATE\UMECLIDINIUM BROMIDE\VILANTEROL TRIFENATATE
  27. LEVOTHYROXINE SODIUM. [Concomitant]
     Active Substance: LEVOTHYROXINE SODIUM
  28. POTASSIUM CHLORIDE. [Concomitant]
     Active Substance: POTASSIUM CHLORIDE
  29. VENTOLIN [Concomitant]
     Active Substance: ALBUTEROL SULFATE
  30. ALBUTEROL NEBULIZER [Concomitant]
     Active Substance: ALBUTEROL
  31. TORSEMIDE. [Concomitant]
     Active Substance: TORSEMIDE
  32. GABAPENTIN. [Concomitant]
     Active Substance: GABAPENTIN

REACTIONS (20)
  - Brain injury [Unknown]
  - Arthralgia [Unknown]
  - Left ventricular dysfunction [Unknown]
  - Fatigue [Not Recovered/Not Resolved]
  - Pain [Unknown]
  - Eye pain [Unknown]
  - Bone pain [Unknown]
  - Dyspnoea [Not Recovered/Not Resolved]
  - Photophobia [Unknown]
  - Feeling abnormal [Not Recovered/Not Resolved]
  - Balance disorder [Unknown]
  - Asthma [Unknown]
  - Chest discomfort [Recovered/Resolved]
  - Malaise [Unknown]
  - Asthenia [Recovered/Resolved]
  - Oxygen saturation decreased [Not Recovered/Not Resolved]
  - Headache [Not Recovered/Not Resolved]
  - Influenza like illness [Not Recovered/Not Resolved]
  - Weight increased [Unknown]
  - Hunger [Unknown]

NARRATIVE: CASE EVENT DATE: 2013
